FAERS Safety Report 9783279 (Version 1)
Quarter: 2013Q4

REPORT INFORMATION
  Report Type: Spontaneous
  Country: US (occurrence: US)
  Receive Date: 20131226
  Receipt Date: 20131226
  Transmission Date: 20140711
  Serious: No
  Sender: FDA-Public Use
  Company Number: US-BAYER-2013-153944

PATIENT
  Sex: Female

DRUGS (2)
  1. ALEVE CAPLET [Suspect]
  2. ALKA-SELTZER PLUS SPARKLING ORIGINAL COLD FORMULA [Suspect]

REACTIONS (1)
  - Overdose [None]
